FAERS Safety Report 23539938 (Version 1)
Quarter: 2024Q1

REPORT INFORMATION
  Report Type: Spontaneous
  Country: CA (occurrence: CA)
  Receive Date: 20240219
  Receipt Date: 20240219
  Transmission Date: 20240409
  Serious: Yes (Disabling, Other)
  Sender: FDA-Public Use
  Company Number: CA-FreseniusKabi-FK202402361

PATIENT
  Age: 47 Year
  Sex: Female

DRUGS (15)
  1. ADALIMUMAB [Suspect]
     Active Substance: ADALIMUMAB\ISOPROPYL ALCOHOL
     Indication: Product used for unknown indication
     Route: 058
  2. ACTEMRA [Suspect]
     Active Substance: TOCILIZUMAB
     Indication: Product used for unknown indication
     Dosage: FOA: NOT SPECIFIED
     Route: 065
  3. ANAKINRA [Suspect]
     Active Substance: ANAKINRA
     Indication: Product used for unknown indication
     Route: 065
  4. LEFLUNOMIDE [Suspect]
     Active Substance: LEFLUNOMIDE
     Indication: Product used for unknown indication
     Dosage: FOA: TABLETS
     Route: 065
  5. ENBREL [Suspect]
     Active Substance: ETANERCEPT
     Indication: Rheumatoid arthritis
     Route: 065
  6. LEFLUNOMIDE [Suspect]
     Active Substance: LEFLUNOMIDE
     Indication: Product used for unknown indication
     Dosage: FOA: NOT SPECIFIED
     Route: 048
  7. METHOTREXATE [Suspect]
     Active Substance: METHOTREXATE
     Indication: Rheumatoid arthritis
     Route: 048
  8. METHOTREXATE [Suspect]
     Active Substance: METHOTREXATE
     Indication: Product used for unknown indication
     Dosage: FOA: NOT SPECIFIED
     Route: 048
  9. ORENCIA [Suspect]
     Active Substance: ABATACEPT
     Indication: Product used for unknown indication
     Route: 065
  10. REMICADE [Suspect]
     Active Substance: INFLIXIMAB
     Indication: Product used for unknown indication
     Dosage: FOA: POWDER FOR SOLUTION INTRAVENOUS
     Route: 042
  11. HUMIRA [Suspect]
     Active Substance: ADALIMUMAB
     Indication: Product used for unknown indication
     Dosage: FOA: SOLUTION SUBCUTANEOUS
     Route: 058
  12. FENTANYL [Concomitant]
     Active Substance: FENTANYL\FENTANYL CITRATE
     Indication: Rheumatoid arthritis
     Dosage: FOA: NOT SPECIFIED
     Route: 065
  13. FENTANYL [Concomitant]
     Active Substance: FENTANYL\FENTANYL CITRATE
     Indication: Pain
     Dosage: FOA: TRANSDERMAL PATCH
     Route: 065
  14. FENTANYL CITRATE [Concomitant]
     Active Substance: FENTANYL CITRATE
     Indication: Product used for unknown indication
     Dosage: FOA: LIQUID EPIDURAL
     Route: 065
  15. RITUXIMAB [Concomitant]
     Active Substance: RITUXIMAB
     Indication: Product used for unknown indication
     Route: 065

REACTIONS (14)
  - Swelling [Unknown]
  - Therapeutic product effect decreased [Unknown]
  - Sensitivity to weather change [Unknown]
  - Rheumatoid arthritis [Unknown]
  - Osteomyelitis [Unknown]
  - Musculoskeletal pain [Unknown]
  - Loss of personal independence in daily activities [Unknown]
  - Liver function test increased [Unknown]
  - Liver function test abnormal [Unknown]
  - Joint swelling [Unknown]
  - Infection [Unknown]
  - Dyspnoea [Unknown]
  - Drug ineffective [Unknown]
  - Back pain [Unknown]
